FAERS Safety Report 9176180 (Version 2)
Quarter: 2012Q4

REPORT INFORMATION
  Report Type: 
  Country: JP (occurrence: JP)
  Receive Date: 20120925
  Receipt Date: 20121004
  Transmission Date: 20130627
  Serious: Yes (Other)
  Sender: FDA-Public Use
  Company Number: JP-RB-044858-12

PATIENT
  Age: 64 Year
  Sex: Male

DRUGS (6)
  1. LEPETAN [Suspect]
     Indication: SEDATIVE THERAPY
     Dosage: Dose details not provided
     Route: 030
  2. PROPOFOL [Concomitant]
     Indication: ANAESTHESIA
     Dosage: Dose details not provided
     Route: 065
  3. FENTANYL CITRATE [Concomitant]
     Indication: ANAESTHESIA
     Dosage: Dose details not provided
     Route: 065
  4. VECURONIUM BROMIDE [Concomitant]
     Indication: HYPOTONIA
     Dosage: Dose details not provided
     Route: 065
  5. DIAZEPAM [Concomitant]
     Indication: SEDATION
     Dosage: Dose details not provided
     Route: 065
  6. FLUNITRAZEPAM [Concomitant]
     Indication: SEDATION
     Dosage: Dose details not provided
     Route: 065

REACTIONS (1)
  - Neuroleptic malignant syndrome [Recovering/Resolving]
